FAERS Safety Report 21671915 (Version 2)
Quarter: 2022Q4

REPORT INFORMATION
  Report Type: Spontaneous
  Country: RU (occurrence: RU)
  Receive Date: 20221202
  Receipt Date: 20221216
  Transmission Date: 20230112
  Serious: No
  Sender: FDA-Public Use
  Company Number: RU-002147023-NVSC2022RU278091

PATIENT
  Age: 60 Year
  Sex: Female

DRUGS (5)
  1. METHOTREXATE [Suspect]
     Active Substance: METHOTREXATE
     Indication: Rheumatoid arthritis
     Dosage: 10 MG, QW
     Route: 065
     Dates: start: 2008
  2. METHOTREXATE [Suspect]
     Active Substance: METHOTREXATE
     Dosage: 12.5 MG, QW
     Route: 065
     Dates: start: 201007, end: 2012
  3. SULFASALAZINE [Suspect]
     Active Substance: SULFASALAZINE
     Indication: Rheumatoid arthritis
     Dosage: 1 G, QD
     Route: 065
     Dates: start: 201007, end: 2012
  4. METHYLPREDNISOLONE [Suspect]
     Active Substance: METHYLPREDNISOLONE
     Indication: Rheumatoid arthritis
     Dosage: 12 MG, QD
     Route: 065
     Dates: start: 201007
  5. RITUXIMAB [Suspect]
     Active Substance: RITUXIMAB
     Indication: Rheumatoid arthritis
     Dosage: 2000 MG
     Route: 065
     Dates: start: 201208

REACTIONS (1)
  - Drug ineffective [Unknown]
